FAERS Safety Report 7352794-3 (Version None)
Quarter: 2011Q1

REPORT INFORMATION
  Report Type: 
  Country: None (occurrence: None)
  Receive Date: 20110315
  Receipt Date: 20110304
  Transmission Date: 20110831
  Serious: Yes (Other)
  Sender: FDA-Public Use
  Company Number: BR-ROCHE-723255

PATIENT
  Sex: Male
  Weight: 125 kg

DRUGS (11)
  1. DILBLOC [Concomitant]
  2. TOCILIZUMAB [Suspect]
     Route: 042
     Dates: start: 20100321, end: 20100321
  3. FLUOXETINE HCL [Concomitant]
  4. TOCILIZUMAB [Suspect]
     Route: 042
     Dates: start: 20100221, end: 20100221
  5. NEBIVOLOL HCL [Concomitant]
  6. CORTICORTEN [Concomitant]
  7. TOCILIZUMAB [Suspect]
     Indication: RHEUMATOID ARTHRITIS
     Route: 042
     Dates: start: 20100121, end: 20100121
  8. TOCILIZUMAB [Suspect]
     Dosage: TREATMENT INTERRUPTED DUE TO UNSPECIFIED REASONS.
     Route: 042
     Dates: start: 20100428
  9. TOCILIZUMAB [Suspect]
     Route: 042
     Dates: start: 20101227
  10. NIMESULIDE [Concomitant]
  11. PREDNISONE [Concomitant]

REACTIONS (9)
  - PAIN [None]
  - RED BLOOD CELL SEDIMENTATION RATE ABNORMAL [None]
  - PAIN IN EXTREMITY [None]
  - NASOPHARYNGITIS [None]
  - OSTEONECROSIS [None]
  - DRUG INEFFECTIVE [None]
  - WHITE BLOOD CELL COUNT INCREASED [None]
  - EAR PAIN [None]
  - INSULIN TOLERANCE TEST ABNORMAL [None]
